FAERS Safety Report 21227318 (Version 1)
Quarter: 2022Q3

REPORT INFORMATION
  Report Type: Spontaneous
  Country: CN (occurrence: CN)
  Receive Date: 20220818
  Receipt Date: 20220818
  Transmission Date: 20221027
  Serious: Yes (Other)
  Sender: FDA-Public Use
  Company Number: CN-TAKEDA-2022TJP070297

PATIENT
  Age: 63 Year
  Sex: Male

DRUGS (3)
  1. ALOGLIPTIN [Suspect]
     Active Substance: ALOGLIPTIN
     Indication: Blood glucose decreased
     Dosage: 25 MILLIGRAM, QD
     Route: 048
  2. GLIPIZIDE [Concomitant]
     Active Substance: GLIPIZIDE
     Indication: Blood glucose abnormal
     Dosage: 10 MILLIGRAM, QD
     Route: 048
  3. ACARBOSE [Concomitant]
     Active Substance: ACARBOSE
     Indication: Blood glucose abnormal
     Dosage: 100 MILLIGRAM, TID
     Route: 048

REACTIONS (1)
  - Pemphigoid [Recovered/Resolved]
